FAERS Safety Report 7572024-7 (Version None)
Quarter: 2011Q2

REPORT INFORMATION
  Report Type: 
  Country: None (occurrence: None)
  Receive Date: 20110624
  Receipt Date: 20110615
  Transmission Date: 20111010
  Serious: Yes (Death, Hospitalization)
  Sender: FDA-Public Use
  Company Number: US-PFIZER INC-2011123946

PATIENT
  Sex: Male
  Weight: 133.33 kg

DRUGS (3)
  1. CELECOXIB [Suspect]
     Indication: RHEUMATOID ARTHRITIS
  2. NEXIUM [Concomitant]
     Dosage: 20 MG, 1X/DAY
     Route: 048
     Dates: start: 20070403
  3. CELECOXIB [Suspect]
     Indication: OSTEOARTHRITIS
     Dosage: 100 MG, 2X/DAY
     Route: 048
     Dates: start: 20070403

REACTIONS (1)
  - DEATH [None]
